FAERS Safety Report 17486011 (Version 1)
Quarter: 2020Q1

REPORT INFORMATION
  Report Type: Spontaneous
  Country: US (occurrence: US)
  Receive Date: 20200303
  Receipt Date: 20200303
  Transmission Date: 20200409
  Serious: No
  Sender: FDA-Public Use
  Company Number: US-009507513-2002USA010137

PATIENT
  Age: 25 Year
  Sex: Female
  Weight: 65.76 kg

DRUGS (1)
  1. NEXPLANON [Suspect]
     Active Substance: ETONOGESTREL
     Indication: CONTRACEPTION
     Dosage: IMPLANT- LEFT ARM
     Route: 059
     Dates: start: 20170807

REACTIONS (1)
  - Menstruation irregular [Unknown]

NARRATIVE: CASE EVENT DATE: 20200218
